FAERS Safety Report 16145990 (Version 1)
Quarter: 2019Q2

REPORT INFORMATION
  Report Type: Spontaneous
  Country: FR (occurrence: FR)
  Receive Date: 20190402
  Receipt Date: 20190402
  Transmission Date: 20190711
  Serious: Yes (Hospitalization)
  Sender: FDA-Public Use
  Company Number: FR-ACCORD-117535

PATIENT
  Age: 68 Year
  Sex: Male
  Weight: 97 kg

DRUGS (12)
  1. FEBUXOSTAT. [Concomitant]
     Active Substance: FEBUXOSTAT
  2. NEBIVOLOL. [Concomitant]
     Active Substance: NEBIVOLOL
  3. AMLODIPINE [Concomitant]
     Active Substance: AMLODIPINE BESYLATE
  4. KAYEXALATE [Concomitant]
     Active Substance: SODIUM POLYSTYRENE SULFONATE
  5. PARACETAMOL [Concomitant]
     Active Substance: ACETAMINOPHEN
  6. YERVOY [Suspect]
     Active Substance: IPILIMUMAB
     Indication: MALIGNANT MELANOMA
     Dosage: STRENGTH :  5 MG/ML
     Route: 041
     Dates: start: 201702
  7. COLECALCIFEROL [Concomitant]
     Active Substance: CHOLECALCIFEROL
  8. ACETYLSALICYLIC ACID [Concomitant]
     Active Substance: ASPIRIN
  9. VOGALENE [Concomitant]
     Active Substance: METOPIMAZINE
  10. URAPIDIL [Concomitant]
     Active Substance: URAPIDIL
  11. SIMVASTATIN. [Concomitant]
     Active Substance: SIMVASTATIN
  12. FUROSEMIDE. [Suspect]
     Active Substance: FUROSEMIDE
     Indication: PRODUCT USED FOR UNKNOWN INDICATION
     Route: 048
     Dates: end: 20170328

REACTIONS (2)
  - General physical health deterioration [Recovered/Resolved]
  - Acute kidney injury [Recovered/Resolved]

NARRATIVE: CASE EVENT DATE: 20170328
